FAERS Safety Report 5689684-8 (Version None)
Quarter: 2008Q1

REPORT INFORMATION
  Report Type: 
  Country: None (occurrence: None)
  Receive Date: 20080328
  Receipt Date: 20080320
  Transmission Date: 20080703
  Serious: Yes (Other)
  Sender: FDA-Public Use
  Company Number: 028-20785-08020466

PATIENT
  Age: 39 Year
  Sex: Female

DRUGS (1)
  1. THALOMID (THALIDOMIDE) (50 MILLIGRAMS) [Suspect]
     Indication: MULTIPLE MYELOMA
     Dosage: 50 MG, 1 IN 1 D
     Dates: start: 20041001

REACTIONS (1)
  - BLOOD GONADOTROPHIN INCREASED [None]
